FAERS Safety Report 8585293-1 (Version None)
Quarter: 2012Q3

REPORT INFORMATION
  Report Type: 
  Country: None (occurrence: None)
  Receive Date: 20120810
  Receipt Date: 20120809
  Transmission Date: 20120928
  Serious: Yes (Life-Threatening)
  Sender: FDA-Public Use
  Company Number: PHHY2012NL066197

PATIENT
  Sex: Male

DRUGS (8)
  1. ZOMETA [Suspect]
     Dosage: 4 MG/100 ML ONCE PER 84 DAYS
     Dates: start: 20120514
  2. SELOKEEN [Concomitant]
     Dosage: UNK UG/KG, UNK
  3. TRAMADOL HCL [Concomitant]
  4. CASODEX [Concomitant]
     Dosage: 1DD1
  5. ZOMETA [Suspect]
     Dosage: 4 MG/100 ML ONCE PER 84 DAYS
     Dates: start: 20120730
  6. ACETAMINOPHEN [Concomitant]
     Dosage: UNK UKN, UNK
  7. LEUPROLIDE ACETATE [Concomitant]
     Dosage: UNK UKN, UNK
  8. ZOMETA [Suspect]
     Indication: PROSTATE CANCER METASTATIC
     Dosage: 4 MG/100 ML ONCE PER 84 DAYS
     Dates: start: 20120210

REACTIONS (4)
  - BILIARY TRACT DISORDER [None]
  - LIVER DISORDER [None]
  - NEOPLASM MALIGNANT [None]
  - MUSCULAR WEAKNESS [None]
